FAERS Safety Report 9124621 (Version 1)
Quarter: 2013Q1

REPORT INFORMATION
  Report Type: Spontaneous
  Country: US (occurrence: US)
  Receive Date: 20130227
  Receipt Date: 20130227
  Transmission Date: 20140127
  Serious: Yes (Other)
  Sender: FDA-Public Use
  Company Number: US-ROCHE-1192358

PATIENT
  Age: 40 Year
  Sex: Female

DRUGS (6)
  1. ENFUVIRTIDE [Suspect]
     Indication: HIV INFECTION
     Route: 065
  2. TENOFOVIR [Suspect]
     Indication: HIV INFECTION
     Route: 065
  3. LAMIVUDINE [Suspect]
     Indication: HIV INFECTION
     Route: 065
  4. ATAZANAVIR [Suspect]
     Indication: HIV INFECTION
     Route: 065
  5. RITONAVIR [Suspect]
     Indication: HIV INFECTION
     Route: 065
  6. FOSAMPRENAVIR [Suspect]
     Indication: HIV INFECTION
     Route: 065

REACTIONS (3)
  - Basedow^s disease [Recovered/Resolved]
  - Abdominal pain [Recovered/Resolved]
  - Pyrexia [Recovered/Resolved]
